FAERS Safety Report 9522399 (Version 1)
Quarter: 2013Q3

REPORT INFORMATION
  Report Type: Spontaneous
  Country: US (occurrence: None)
  Receive Date: 20130911
  Receipt Date: 20130911
  Transmission Date: 20140515
  Serious: No
  Sender: FDA-Public Use
  Company Number: AEUSA201300126

PATIENT
  Age: 58 Year
  Sex: Male
  Weight: 166.02 kg

DRUGS (12)
  1. GAMUNEX-C (10 PCT) [Suspect]
     Indication: CHRONIC INFLAMMATORY DEMYELINATING POLYRADICULONEUROPATHY
     Route: 042
     Dates: start: 201212
  2. COUMADIN [Concomitant]
  3. COREG [Concomitant]
  4. NORCO [Concomitant]
  5. NEURONTIN [Concomitant]
  6. PROZAC [Concomitant]
  7. ANDROGEL [Concomitant]
  8. KCL [Concomitant]
  9. LASIX [Concomitant]
  10. CRESTOR [Concomitant]
  11. PARACETAMOL [Concomitant]
  12. ZYRTEC [Concomitant]

REACTIONS (4)
  - Rash [None]
  - Blister [None]
  - Urticaria [None]
  - Skin exfoliation [None]
